FAERS Safety Report 12037712 (Version 1)
Quarter: 2016Q1

REPORT INFORMATION
  Report Type: Spontaneous
  Country: US (occurrence: None)
  Receive Date: 20160205
  Receipt Date: 20160205
  Transmission Date: 20160526
  Serious: Yes (Hospitalization)
  Sender: FDA-Public Use
  Company Number: None

PATIENT
  Age: 68 Year
  Sex: Female

DRUGS (8)
  1. OSTEO-BIFLEX [Concomitant]
  2. CLINDAMYCIN 300MG [Suspect]
     Active Substance: CLINDAMYCIN PHOSPHATE
     Indication: CELLULITIS
     Route: 048
     Dates: start: 20160106, end: 20160120
  3. DILTIAZEM XR [Concomitant]
     Active Substance: DILTIAZEM
  4. ESTRADIOL. [Concomitant]
     Active Substance: ESTRADIOL
  5. CELEBREX [Concomitant]
     Active Substance: CELECOXIB
  6. ZYRTEC [Concomitant]
     Active Substance: CETIRIZINE HYDROCHLORIDE
  7. HCTZ [Concomitant]
     Active Substance: HYDROCHLOROTHIAZIDE
  8. KLOR-CON [Concomitant]
     Active Substance: POTASSIUM CHLORIDE

REACTIONS (2)
  - Hypersensitivity [None]
  - Blister [None]

NARRATIVE: CASE EVENT DATE: 20160116
